FAERS Safety Report 22048818 (Version 1)
Quarter: 2023Q1

REPORT INFORMATION
  Report Type: Spontaneous
  Country: US (occurrence: None)
  Receive Date: 20230228
  Receipt Date: 20230228
  Transmission Date: 20230417
  Serious: Yes (Life-Threatening, Hospitalization, Other)
  Sender: FDA-Public Use
  Company Number: None

PATIENT
  Age: 35 Year
  Sex: Female
  Weight: 54 kg

DRUGS (3)
  1. CLONAZEPAM [Suspect]
     Active Substance: CLONAZEPAM
     Indication: Anxiety
     Dates: start: 20211001
  2. CLONAZEPAM [Suspect]
     Active Substance: CLONAZEPAM
     Indication: Postpartum stress disorder
  3. DIAZEPAM [Suspect]
     Active Substance: DIAZEPAM

REACTIONS (6)
  - Withdrawal syndrome [None]
  - Suicidal ideation [None]
  - Abnormal behaviour [None]
  - Self-injurious ideation [None]
  - Impaired work ability [None]
  - Social fear [None]

NARRATIVE: CASE EVENT DATE: 20221206
